FAERS Safety Report 16326107 (Version 2)
Quarter: 2019Q3

REPORT INFORMATION
  Report Type: Report from Study
  Country: CL (occurrence: CL)
  Receive Date: 20190517
  Receipt Date: 20190923
  Transmission Date: 20191004
  Serious: Yes (Other)
  Sender: FDA-Public Use
  Company Number: CL-BRISTOL-MYERS SQUIBB COMPANY-BMS-2018-039394

PATIENT
  Sex: Female

DRUGS (2)
  1. ABATACEPT [Suspect]
     Active Substance: ABATACEPT
     Indication: RHEUMATOID ARTHRITIS
     Dosage: 125 MG, QWK
     Route: 058
     Dates: start: 20171110
  2. PREGABALIN. [Concomitant]
     Active Substance: PREGABALIN
     Indication: PRODUCT USED FOR UNKNOWN INDICATION
     Route: 065

REACTIONS (13)
  - Impaired healing [Unknown]
  - Joint swelling [Unknown]
  - Urinary tract infection [Not Recovered/Not Resolved]
  - Arthralgia [Not Recovered/Not Resolved]
  - Pneumonia [Recovering/Resolving]
  - Arthritis [Not Recovered/Not Resolved]
  - Inflammation [Recovering/Resolving]
  - Ingrowing nail [Unknown]
  - Pain [Recovering/Resolving]
  - Helicobacter infection [Recovering/Resolving]
  - Colitis [Not Recovered/Not Resolved]
  - Peripheral swelling [Unknown]
  - Gastric infection [Unknown]
